FAERS Safety Report 19024416 (Version 1)
Quarter: 2021Q1

REPORT INFORMATION
  Report Type: Report from Study
  Country: None (occurrence: IT)
  Receive Date: 20210317
  Receipt Date: 20210317
  Transmission Date: 20210420
  Serious: Yes (Other)
  Sender: FDA-Public Use
  Company Number: IT-ABBVIE-21K-083-3817478-00

PATIENT
  Age: 70 Year
  Sex: Male

DRUGS (2)
  1. DUODOPA [Suspect]
     Active Substance: CARBIDOPA\LEVODOPA
  2. DUODOPA [Suspect]
     Active Substance: CARBIDOPA\LEVODOPA
     Indication: PARKINSON^S DISEASE
     Dosage: DAILY DOSE: 804 MG; PUMP SETTING: MD: 3+3 CR: 2,2, ED: 1
     Route: 050
     Dates: start: 20141013, end: 20210311

REACTIONS (2)
  - Duodenal ulcer [Unknown]
  - Decubitus ulcer [Unknown]

NARRATIVE: CASE EVENT DATE: 20210311
